FAERS Safety Report 4842589-4 (Version None)
Quarter: 2005Q4

REPORT INFORMATION
  Report Type: 
  Country: None (occurrence: None)
  Receive Date: 20051201
  Receipt Date: 20051123
  Transmission Date: 20060501
  Serious: Yes (Other)
  Sender: FDA-Public Use
  Company Number: US-GLAXOSMITHKLINE-A0583308A

PATIENT
  Age: 52 Year
  Sex: Male

DRUGS (3)
  1. FLONASE [Suspect]
     Dosage: 2SPR PER DAY
     Route: 045
  2. NORITATE [Concomitant]
  3. PSEUDOEPHEDRINE HCL [Concomitant]
     Dosage: 30MG AS REQUIRED

REACTIONS (6)
  - CONDITION AGGRAVATED [None]
  - GLARE [None]
  - HALO VISION [None]
  - MYOPIA [None]
  - NIGHT BLINDNESS [None]
  - VISION BLURRED [None]
